FAERS Safety Report 4959353-8 (Version None)
Quarter: 2006Q1

REPORT INFORMATION
  Report Type: 
  Country: None (occurrence: None)
  Receive Date: 20060331
  Receipt Date: 20060324
  Transmission Date: 20060701
  Serious: Yes (Hospitalization)
  Sender: FDA-Public Use
  Company Number: 2006AP01471

PATIENT
  Age: 75 Year
  Sex: Male

DRUGS (3)
  1. CRESTOR [Suspect]
     Indication: HYPERCHOLESTEROLAEMIA
     Route: 048
     Dates: start: 20060210, end: 20060310
  2. INSULIN [Suspect]
     Indication: DIABETES MELLITUS
     Route: 058
  3. BETA BLOCKER [Suspect]
     Indication: HYPERTENSION
     Route: 048

REACTIONS (1)
  - DEEP VEIN THROMBOSIS [None]
